FAERS Safety Report 23776367 (Version 1)
Quarter: 2024Q2

REPORT INFORMATION
  Report Type: Spontaneous
  Country: US (occurrence: US)
  Receive Date: 20240424
  Receipt Date: 20240424
  Transmission Date: 20240716
  Serious: Yes (Death, Other)
  Sender: FDA-Public Use
  Company Number: US-AMNEAL PHARMACEUTICALS-2024-AMRX-01349

PATIENT
  Age: 62 Year
  Sex: Female

DRUGS (1)
  1. HYDROXYCHLOROQUINE SULFATE [Suspect]
     Active Substance: HYDROXYCHLOROQUINE SULFATE
     Indication: Chronic cutaneous lupus erythematosus
     Dosage: 200 MILLIGRAM, 2 /DAY
     Route: 065

REACTIONS (4)
  - Hepatotoxicity [Fatal]
  - Intestinal ischaemia [Fatal]
  - Pneumatosis intestinalis [Fatal]
  - Metabolic encephalopathy [Unknown]
